FAERS Safety Report 24965268 (Version 1)
Quarter: 2025Q1

REPORT INFORMATION
  Report Type: Spontaneous
  Country: US (occurrence: None)
  Receive Date: 20250212
  Receipt Date: 20250212
  Transmission Date: 20250408
  Serious: Yes (Life-Threatening, Hospitalization, Disabling)
  Sender: FDA-CTU
  Company Number: None

PATIENT
  Age: 63 Year
  Sex: Male

DRUGS (5)
  1. JARDIANCE [Suspect]
     Active Substance: EMPAGLIFLOZIN
     Indication: Diabetes mellitus
     Dosage: OTHER QUANTITY : 1 TABLET(S);?FREQUENCY : DAILY;?
     Route: 048
     Dates: start: 20240408, end: 20240524
  2. ALLOPURINOL [Concomitant]
     Active Substance: ALLOPURINOL
  3. LOSARTAN [Concomitant]
     Active Substance: LOSARTAN
  4. ALBUTEROL [Concomitant]
     Active Substance: ALBUTEROL
  5. TYLENOL [Concomitant]
     Active Substance: ACETAMINOPHEN

REACTIONS (6)
  - Penile infection [None]
  - Fungal infection [None]
  - Haemorrhage [None]
  - Anorectal disorder [None]
  - Necrotising fasciitis [None]
  - Penile discharge [None]

NARRATIVE: CASE EVENT DATE: 20240519
